FAERS Safety Report 5151433-X (Version None)
Quarter: 2006Q4

REPORT INFORMATION
  Report Type: 
  Country: None (occurrence: None)
  Receive Date: 20061114
  Receipt Date: 20061114
  Transmission Date: 20070319
  Serious: No
  Sender: FDA-Public Use
  Company Number: None

PATIENT
  Age: 43 Year
  Sex: Female
  Weight: 83.9154 kg

DRUGS (2)
  1. ACETAMINOPHEN [Suspect]
     Indication: HEADACHE
     Dosage: 2 TABLETS  OFTEN  PO
     Route: 048
     Dates: start: 20060710, end: 20060714
  2. ACETAMINOPHEN [Suspect]
     Indication: HEADACHE
     Dosage: 2 TABLETS  OFTEN  PO
     Route: 048
     Dates: start: 20061105, end: 20061108

REACTIONS (3)
  - MALAISE [None]
  - PHARMACEUTICAL PRODUCT COMPLAINT [None]
  - POOR QUALITY DRUG ADMINISTERED [None]
